FAERS Safety Report 21669094 (Version 1)
Quarter: 2022Q4

REPORT INFORMATION
  Report Type: Spontaneous
  Country: US (occurrence: US)
  Receive Date: 20221201
  Receipt Date: 20221201
  Transmission Date: 20230113
  Serious: No
  Sender: FDA-Public Use
  Company Number: US-Calliditas-2022CAL00525

PATIENT
  Age: 29 Year
  Sex: Female

DRUGS (1)
  1. TARPEYO [Suspect]
     Active Substance: BUDESONIDE
     Indication: IgA nephropathy
     Dosage: 16 MG (4 MG CAPSULES) ONCE DAILY
     Route: 048
     Dates: start: 20220427

REACTIONS (6)
  - Weight increased [Unknown]
  - Alopecia [Unknown]
  - Oedema [Unknown]
  - Contusion [Unknown]
  - Swelling face [Unknown]
  - Proteinuria [Unknown]
